FAERS Safety Report 12557684 (Version 1)
Quarter: 2016Q3

REPORT INFORMATION
  Report Type: Spontaneous
  Country: US (occurrence: US)
  Receive Date: 20160714
  Receipt Date: 20160714
  Transmission Date: 20161109
  Serious: No
  Sender: FDA-Public Use
  Company Number: US-009507513-1607USA002885

PATIENT
  Sex: Female
  Weight: 61.68 kg

DRUGS (2)
  1. NEXPLANON [Suspect]
     Active Substance: ETONOGESTREL
     Indication: CONTRACEPTION
     Dosage: 1 DF, ONCE PER THREE YEARS
     Route: 059
     Dates: start: 20160505, end: 20160630
  2. LEVORA [Suspect]
     Active Substance: ETHINYL ESTRADIOL\LEVONORGESTREL

REACTIONS (2)
  - Anxiety [Unknown]
  - Depression [Unknown]

NARRATIVE: CASE EVENT DATE: 2016
